FAERS Safety Report 18780953 (Version 1)
Quarter: 2021Q1

REPORT INFORMATION
  Report Type: Spontaneous
  Country: US (occurrence: US)
  Receive Date: 20210123
  Receipt Date: 20210123
  Transmission Date: 20210419
  Serious: Yes (Other)
  Sender: FDA-Public Use
  Company Number: None

PATIENT
  Age: 37 Year
  Sex: Female
  Weight: 85.5 kg

DRUGS (10)
  1. VITAMIN D [Concomitant]
     Active Substance: VITAMIN D NOS
  2. MAGNESIUM [Concomitant]
     Active Substance: MAGNESIUM
  3. GENERIC ZYRTEC [Concomitant]
     Active Substance: CETIRIZINE HYDROCHLORIDE
  4. VITAMIN C [Concomitant]
     Active Substance: ASCORBIC ACID
  5. ALPHA LIPOIC ACID [Suspect]
     Active Substance: .ALPHA.-LIPOIC ACID
  6. ZINC. [Concomitant]
     Active Substance: ZINC
  7. MIRENA [Suspect]
     Active Substance: LEVONORGESTREL
     Indication: MENORRHAGIA
     Dosage: ?          OTHER ROUTE:INTRAUTERINE?
     Dates: start: 20201217, end: 20201230
  8. MIRENA [Suspect]
     Active Substance: LEVONORGESTREL
     Indication: PRODUCT USED FOR UNKNOWN INDICATION
     Dosage: ?          OTHER ROUTE:INTRAUTERINE?
     Dates: start: 20201217, end: 20201230
  9. MIRENA [Suspect]
     Active Substance: LEVONORGESTREL
     Indication: UTERINE POLYP
     Dosage: ?          OTHER ROUTE:INTRAUTERINE?
     Dates: start: 20201217, end: 20201230
  10. MULTIVITAMIN [Concomitant]
     Active Substance: VITAMINS

REACTIONS (7)
  - Drug hypersensitivity [None]
  - Urticaria [None]
  - Chest discomfort [None]
  - Diarrhoea [None]
  - Lip swelling [None]
  - Peripheral swelling [None]
  - Multiple sclerosis relapse [None]

NARRATIVE: CASE EVENT DATE: 20201227
